FAERS Safety Report 9632905 (Version 1)
Quarter: 2013Q4

REPORT INFORMATION
  Report Type: Spontaneous
  Country: DK (occurrence: NO)
  Receive Date: 20131018
  Receipt Date: 20131018
  Transmission Date: 20140711
  Serious: Yes (Hospitalization)
  Sender: FDA-Public Use
  Company Number: NO-FRI-1000050216

PATIENT
  Age: 80 Year
  Sex: Male

DRUGS (3)
  1. ESCITALOPRAM [Suspect]
     Indication: DEPRESSION
     Dosage: 5 MG
     Dates: start: 20130916, end: 20130924
  2. HEMINEVRIN [Concomitant]
     Dosage: 300 MG
     Dates: start: 20130901, end: 20130919
  3. PARACETAMOL [Concomitant]
     Dosage: 1 GRAM
     Route: 048
     Dates: start: 20130918, end: 20130925

REACTIONS (1)
  - Drug-induced liver injury [Recovering/Resolving]
